FAERS Safety Report 4365735-8 (Version None)
Quarter: 2004Q2

REPORT INFORMATION
  Report Type: 
  Country: None (occurrence: None)
  Receive Date: 20040520
  Receipt Date: 20040513
  Transmission Date: 20050107
  Serious: Yes (Hospitalization)
  Sender: FDA-Public Use
  Company Number: 2004-04-0753

PATIENT
  Age: 10 Year
  Sex: Female
  Weight: 28 kg

DRUGS (1)
  1. AERIUS (DESLORATADINE) TABLET 'LIKE CLARINEX' [Suspect]
     Indication: RHINITIS ALLERGIC
     Dosage: ORAL
     Route: 048
     Dates: start: 20040211, end: 20040311

REACTIONS (3)
  - ASTHENIA [None]
  - DIABETIC KETOACIDOSIS [None]
  - DYSPNOEA EXERTIONAL [None]
